FAERS Safety Report 17881460 (Version 1)
Quarter: 2020Q2

REPORT INFORMATION
  Report Type: Spontaneous
  Country: US (occurrence: US)
  Receive Date: 20200610
  Receipt Date: 20200610
  Transmission Date: 20200714
  Serious: No
  Sender: FDA-Public Use
  Company Number: US-COLLEGIUM PHARMACEUTICAL, INC.-2019CGM00319

PATIENT
  Age: 61 Year
  Sex: Female

DRUGS (2)
  1. XTAMPZA ER [Suspect]
     Active Substance: OXYCODONE
     Dosage: 36 MG
     Dates: start: 20191112, end: 20191120
  2. ^SHORT ACTING^ OXYCODONE [Concomitant]

REACTIONS (4)
  - Swelling face [Unknown]
  - Facial pain [Unknown]
  - Night sweats [Unknown]
  - Pain [Unknown]

NARRATIVE: CASE EVENT DATE: 201911
